FAERS Safety Report 16880295 (Version 4)
Quarter: 2023Q1

REPORT INFORMATION
  Report Type: Report from Study
  Country: US (occurrence: None)
  Receive Date: 20191003
  Receipt Date: 20230328
  Transmission Date: 20230417
  Serious: Yes (Hospitalization, Other)
  Sender: FDA-Public Use
  Company Number: US-SERONO NORDIC A.B.-231947J10USA

PATIENT
  Age: 69 Year
  Sex: Female

DRUGS (7)
  1. REBIF [Suspect]
     Active Substance: INTERFERON BETA-1A
     Indication: Multiple sclerosis
     Route: 058
     Dates: start: 20030106, end: 20100405
  2. REBIF [Suspect]
     Active Substance: INTERFERON BETA-1A
     Route: 058
  3. CARDURA [Concomitant]
     Active Substance: DOXAZOSIN MESYLATE
     Indication: Hypertension
     Dates: start: 2006
  4. LOPRESSOR [Concomitant]
     Active Substance: METOPROLOL TARTRATE
     Indication: Hypertension
     Dates: start: 2006
  5. SYNTHROID [Concomitant]
     Active Substance: LEVOTHYROXINE SODIUM
     Indication: Thyroid mass
     Dosage: STARTED PRIOR TO REBIF
  6. ZOCOR [Concomitant]
     Active Substance: SIMVASTATIN
     Indication: Blood cholesterol increased
  7. ACTONEL [Concomitant]
     Active Substance: RISEDRONATE SODIUM
     Indication: Osteoporosis

REACTIONS (11)
  - Atrial fibrillation [Unknown]
  - Large intestine polyp [Recovered/Resolved]
  - Large intestine perforation [Recovering/Resolving]
  - Diverticular perforation [Recovering/Resolving]
  - Diverticulitis [Recovering/Resolving]
  - Large intestinal obstruction [Recovering/Resolving]
  - Incisional hernia [Recovering/Resolving]
  - Micturition disorder [Unknown]
  - Bowel movement irregularity [Unknown]
  - Diverticulum [Recovering/Resolving]
  - Abdominal adhesions [Unknown]

NARRATIVE: CASE EVENT DATE: 20090201
